FAERS Safety Report 21204172 (Version 8)
Quarter: 2023Q2

REPORT INFORMATION
  Report Type: Report from Study
  Country: US (occurrence: US)
  Receive Date: 20220812
  Receipt Date: 20230608
  Transmission Date: 20230722
  Serious: Yes (Other)
  Sender: FDA-Public Use
  Company Number: US-002147023-NVSC2022US182314

PATIENT
  Age: 77 Year
  Sex: Male

DRUGS (1)
  1. KESIMPTA [Suspect]
     Active Substance: OFATUMUMAB
     Indication: Relapsing multiple sclerosis
     Dosage: 20 MG, QMO
     Route: 058
     Dates: start: 20220513

REACTIONS (8)
  - Nephrolithiasis [Unknown]
  - Blood glucose increased [Unknown]
  - Headache [Unknown]
  - Glycosylated haemoglobin decreased [Unknown]
  - COVID-19 [Unknown]
  - Oedema peripheral [Unknown]
  - Limb discomfort [Unknown]
  - Inappropriate schedule of product administration [Unknown]

NARRATIVE: CASE EVENT DATE: 20220906
